FAERS Safety Report 15490550 (Version 2)
Quarter: 2018Q4

REPORT INFORMATION
  Report Type: Report from Study
  Country: IT (occurrence: IT)
  Receive Date: 20181011
  Receipt Date: 20181106
  Transmission Date: 20190205
  Serious: Yes (Hospitalization)
  Sender: FDA-Public Use
  Company Number: PHHO2018IT010967

PATIENT
  Age: 49 Year
  Sex: Female
  Weight: 45 kg

DRUGS (2)
  1. CGS 20267 [Suspect]
     Active Substance: LETROZOLE
     Indication: BREAST CANCER
     Dosage: 2.5 MG, BID
     Route: 048
     Dates: start: 20180608, end: 20181002
  2. LEE011 [Suspect]
     Active Substance: RIBOCICLIB
     Indication: BREAST CANCER
     Dosage: 600 MG, BID Q21
     Route: 048
     Dates: start: 20180608, end: 20180925

REACTIONS (1)
  - Bradyarrhythmia [Recovered/Resolved with Sequelae]

NARRATIVE: CASE EVENT DATE: 20181002
